FAERS Safety Report 13141344 (Version 1)
Quarter: 2017Q1

REPORT INFORMATION
  Report Type: Report from Study
  Country: US (occurrence: US)
  Receive Date: 20170124
  Receipt Date: 20170124
  Transmission Date: 20170428
  Serious: Yes (Other)
  Sender: FDA-Public Use
  Company Number: US-B.I. PHARMACEUTICALS,INC./RIDGEFIELD-2017-BI-002979

PATIENT
  Sex: Female

DRUGS (2)
  1. COMBIVENT [Suspect]
     Active Substance: ALBUTEROL SULFATE\IPRATROPIUM BROMIDE
     Indication: CHRONIC OBSTRUCTIVE PULMONARY DISEASE
  2. COMBIVENT [Suspect]
     Active Substance: ALBUTEROL SULFATE\IPRATROPIUM BROMIDE
     Indication: EMPHYSEMA
     Dosage: DAILY DOSE: 2 PUFFS 4 TIMES A DAY;  FORM STRENGTH: 18 MCG / 103 MCG
     Route: 055
     Dates: start: 1995, end: 2011

REACTIONS (3)
  - Lung neoplasm malignant [Not Recovered/Not Resolved]
  - Breast cancer [Recovered/Resolved]
  - Hepatic cancer [Not Recovered/Not Resolved]

NARRATIVE: CASE EVENT DATE: 2002
